FAERS Safety Report 16786188 (Version 6)
Quarter: 2020Q1

REPORT INFORMATION
  Report Type: Spontaneous
  Country: US (occurrence: US)
  Receive Date: 20190909
  Receipt Date: 20200228
  Transmission Date: 20200409
  Serious: Yes (Hospitalization, Other)
  Sender: FDA-Public Use
  Company Number: US-PFIZER INC-2019385477

PATIENT
  Age: 67 Year
  Sex: Female
  Weight: 44 kg

DRUGS (4)
  1. XELJANZ XR [Suspect]
     Active Substance: TOFACITINIB CITRATE
     Dosage: 11 MG, 1X/DAY
     Dates: start: 20191030
  2. HYDROCODONE [Concomitant]
     Active Substance: HYDROCODONE
     Dosage: UNK
     Dates: start: 20190930, end: 20191215
  3. METHOTREXATE. [Concomitant]
     Active Substance: METHOTREXATE
     Dosage: UNK
     Dates: start: 2016
  4. XELJANZ XR [Suspect]
     Active Substance: TOFACITINIB CITRATE
     Indication: RHEUMATOID ARTHRITIS
     Dosage: 11 MG, 1X/DAY
     Dates: start: 2018

REACTIONS (5)
  - Pain in extremity [Recovered/Resolved]
  - Intentional dose omission [Unknown]
  - Product dose omission [Unknown]
  - Insomnia [Unknown]
  - Near death experience [Recovering/Resolving]

NARRATIVE: CASE EVENT DATE: 20191101
